FAERS Safety Report 14998264 (Version 1)
Quarter: 2018Q2

REPORT INFORMATION
  Report Type: Spontaneous
  Country: FR (occurrence: FR)
  Receive Date: 20180611
  Receipt Date: 20180611
  Transmission Date: 20180711
  Serious: Yes (Hospitalization, Disabling, Other)
  Sender: FDA-Public Use
  Company Number: FR-ALLERGAN-1829761US

PATIENT
  Age: 24 Year
  Sex: Female

DRUGS (2)
  1. PYLERA [Suspect]
     Active Substance: BISMUTH SUBCITRATE POTASSIUM\METRONIDAZOLE\TETRACYCLINE HYDROCHLORIDE
     Indication: PRODUCT USED FOR UNKNOWN INDICATION
     Dosage: UNK
     Route: 065
     Dates: start: 201704
  2. TRIAFEMI [Suspect]
     Active Substance: ETHINYL ESTRADIOL\NORGESTREL
     Indication: PRODUCT USED FOR UNKNOWN INDICATION
     Dosage: UNK
     Route: 065
     Dates: start: 201706

REACTIONS (15)
  - Cranial nerve paralysis [Unknown]
  - Tinnitus [Unknown]
  - Pain [Recovered/Resolved]
  - Viral infection [Unknown]
  - Eating disorder [Unknown]
  - Depression [Unknown]
  - Deafness neurosensory [Unknown]
  - Papilloedema [Unknown]
  - Menorrhagia [Unknown]
  - Nuchal rigidity [Unknown]
  - Eye swelling [Unknown]
  - Diplopia [Unknown]
  - Vomiting [Unknown]
  - Oedema [Unknown]
  - Intracranial pressure increased [Unknown]

NARRATIVE: CASE EVENT DATE: 2017
